FAERS Safety Report 4925861-9 (Version None)
Quarter: 2006Q1

REPORT INFORMATION
  Report Type: 
  Country: None (occurrence: None)
  Receive Date: 20060228
  Receipt Date: 20050401
  Transmission Date: 20060701
  Serious: No
  Sender: FDA-Public Use
  Company Number: US-GLAXOSMITHKLINE-A0552347A

PATIENT
  Age: 43 Year
  Sex: Female

DRUGS (17)
  1. LAMICTAL [Suspect]
     Indication: NEURALGIA
     Dosage: 100MG TWICE PER DAY
     Route: 048
     Dates: start: 20050131
  2. PROVIGIL [Concomitant]
  3. CLONAZEPAM [Concomitant]
  4. WELLBUTRIN [Concomitant]
  5. LEXAPRO [Concomitant]
  6. LITHIUM [Concomitant]
  7. NEURONTIN [Concomitant]
  8. ALBUTEROL [Concomitant]
  9. THYROID HORMONE [Concomitant]
  10. PERCOCET [Concomitant]
  11. PROTONIX [Concomitant]
  12. CENTRUM [Concomitant]
  13. VICODIN [Concomitant]
  14. FLURBIPROFEN [Concomitant]
  15. DHEA [Concomitant]
  16. GLUCOSAMINE/CHONDROITIN [Concomitant]
  17. CALCIUM GLUCONATE [Concomitant]

REACTIONS (1)
  - DEPRESSION [None]
